FAERS Safety Report 8060288-5 (Version None)
Quarter: 2012Q1

REPORT INFORMATION
  Report Type: 
  Country: None (occurrence: None)
  Receive Date: 20120120
  Receipt Date: 20111103
  Transmission Date: 20120608
  Serious: No
  Sender: FDA-Public Use
  Company Number: US-NOVEN-11US003551

PATIENT
  Sex: Male

DRUGS (2)
  1. TESTOSTERONE [Concomitant]
     Indication: PRODUCT USED FOR UNKNOWN INDICATION
     Route: 061
  2. FENTANYL [Suspect]
     Indication: PAIN
     Dosage: 100 MCG/HR EVERY 3 DAYS
     Route: 062
     Dates: start: 20111001

REACTIONS (2)
  - INSOMNIA [None]
  - INADEQUATE ANALGESIA [None]
